FAERS Safety Report 11132374 (Version 2)
Quarter: 2015Q2

REPORT INFORMATION
  Report Type: Spontaneous
  Country: JP (occurrence: JP)
  Receive Date: 20150522
  Receipt Date: 20150622
  Transmission Date: 20150821
  Serious: Yes (Hospitalization, Other)
  Sender: FDA-Public Use
  Company Number: JP-ASTRAZENECA-2015SE09140

PATIENT
  Age: 39 Year
  Sex: Female
  Weight: 54 kg

DRUGS (19)
  1. SEROQUEL [Suspect]
     Active Substance: QUETIAPINE FUMARATE
     Indication: SCHIZOPHRENIA
     Route: 048
     Dates: start: 20090328, end: 201307
  2. SEROQUEL [Suspect]
     Active Substance: QUETIAPINE FUMARATE
     Indication: DEPRESSION
     Route: 048
     Dates: start: 201307, end: 201405
  3. MERCAZOLE [Concomitant]
     Active Substance: CARBIMAZOLE
     Dates: start: 20140813, end: 20141204
  4. SEROQUEL [Suspect]
     Active Substance: QUETIAPINE FUMARATE
     Indication: DEPRESSION
     Route: 048
     Dates: start: 20090328, end: 201307
  5. SEROQUEL [Suspect]
     Active Substance: QUETIAPINE FUMARATE
     Indication: DEPRESSION
     Route: 048
     Dates: start: 201405, end: 20150113
  6. INDERAL [Concomitant]
     Active Substance: PROPRANOLOL HYDROCHLORIDE
     Dates: start: 20140813, end: 20141030
  7. LENDORMIN [Concomitant]
     Active Substance: BROTIZOLAM
     Dates: start: 20070825
  8. THIURAGYL [Concomitant]
     Dates: start: 20141212
  9. JZOLOFT [Concomitant]
     Active Substance: SERTRALINE HYDROCHLORIDE
     Dates: start: 20070825
  10. BROTIZOLAM [Concomitant]
     Active Substance: BROTIZOLAM
     Dates: start: 20070825
  11. TRAZODONE [Concomitant]
     Active Substance: TRAZODONE HYDROCHLORIDE
     Dates: start: 20070825
  12. SEROQUEL [Suspect]
     Active Substance: QUETIAPINE FUMARATE
     Indication: SCHIZOPHRENIA
     Route: 048
     Dates: start: 20070825, end: 20090327
  13. LITHIUM CARBONATE. [Concomitant]
     Active Substance: LITHIUM CARBONATE
     Dates: start: 20070825
  14. MYSLEE [Concomitant]
     Active Substance: ZOLPIDEM TARTRATE
     Dates: start: 20070825
  15. SEROQUEL [Suspect]
     Active Substance: QUETIAPINE FUMARATE
     Indication: DEPRESSION
     Route: 048
     Dates: start: 20070825, end: 20090327
  16. SEROQUEL [Suspect]
     Active Substance: QUETIAPINE FUMARATE
     Indication: SCHIZOPHRENIA
     Route: 048
     Dates: start: 201307, end: 201405
  17. SEROQUEL [Suspect]
     Active Substance: QUETIAPINE FUMARATE
     Indication: SCHIZOPHRENIA
     Route: 048
     Dates: start: 201405, end: 20150113
  18. NITRAZEPAM [Concomitant]
     Active Substance: NITRAZEPAM
     Dates: start: 20070825
  19. ZOPICLONE [Concomitant]
     Active Substance: ZOPICLONE
     Dates: start: 20070825

REACTIONS (4)
  - Basedow^s disease [Recovering/Resolving]
  - Product use issue [Unknown]
  - Off label use [None]
  - Diabetes mellitus [Recovering/Resolving]

NARRATIVE: CASE EVENT DATE: 20140813
